FAERS Safety Report 4851882-0 (Version None)
Quarter: 2005Q4

REPORT INFORMATION
  Report Type: 
  Country: None (occurrence: None)
  Receive Date: 20051209
  Receipt Date: 20051123
  Transmission Date: 20060501
  Serious: Yes (Hospitalization)
  Sender: FDA-Public Use
  Company Number: 2005EN000472

PATIENT
  Age: 54 Year
  Sex: Female

DRUGS (2)
  1. ABELCET [Suspect]
     Dates: start: 20030101, end: 20030101
  2. ANTIBIOTICS [Concomitant]

REACTIONS (3)
  - ACUTE RESPIRATORY FAILURE [None]
  - PNEUMONIA FUNGAL [None]
  - SEPTIC SHOCK [None]
